FAERS Safety Report 4845395-X (Version None)
Quarter: 2005Q4

REPORT INFORMATION
  Report Type: 
  Country: None (occurrence: None)
  Receive Date: 20051129
  Receipt Date: 20051114
  Transmission Date: 20060501
  Serious: No
  Sender: FDA-Public Use
  Company Number: 2005-134659-NL

PATIENT
  Age: 21 Year
  Sex: Male

DRUGS (4)
  1. MIRTAZAPINE [Suspect]
     Dosage: 22.5 MG; ORAL
     Route: 048
     Dates: start: 20040101, end: 20050801
  2. MIRTAZAPINE [Suspect]
     Dosage: 22.5 MG; ORAL
     Route: 048
     Dates: start: 20051024
  3. ZOLPIDEM TARTRATE [Concomitant]
  4. ZOPICLONE [Concomitant]

REACTIONS (3)
  - ATRIAL FIBRILLATION [None]
  - BLOOD PRESSURE INCREASED [None]
  - HEART RATE INCREASED [None]
